FAERS Safety Report 8440226-3 (Version None)
Quarter: 2012Q2

REPORT INFORMATION
  Report Type: 
  Country: None (occurrence: None)
  Receive Date: 20120615
  Receipt Date: 20120608
  Transmission Date: 20120825
  Serious: Yes (Life-Threatening, Hospitalization, Disabling, Other)
  Sender: FDA-Public Use
  Company Number: FR-ROCHE-1065408

PATIENT
  Sex: Male
  Weight: 118 kg

DRUGS (12)
  1. MORPHINE SULFATE [Suspect]
     Indication: SCIATICA
     Dates: start: 20110901
  2. TAMSULOSIN HCL [Concomitant]
  3. RANIBIZUMAB [Suspect]
     Dosage: DOSE: 10 MG/ML
     Route: 050
     Dates: start: 20110818, end: 20110922
  4. TIOTROPIUM BROMIDE [Concomitant]
  5. INSULIN [Concomitant]
     Dates: start: 20110201
  6. ATORVASTATIN CALCIUM [Concomitant]
  7. RANIBIZUMAB [Suspect]
     Indication: DIABETIC RETINAL OEDEMA
     Dosage: DOSE: 10 MG/ML, LAST DOSE PRIOR TO SAE: 18/AUG/2011
     Route: 050
     Dates: start: 20110616, end: 20110616
  8. BISOPROLOL FUMARATE [Concomitant]
  9. ALBUTEROL [Concomitant]
  10. RAMIPRIL [Concomitant]
  11. ASPEGIC 1000 [Concomitant]
  12. VENLAFAXINE HCL [Concomitant]

REACTIONS (6)
  - CARDIO-RESPIRATORY ARREST [None]
  - HYPOXIC-ISCHAEMIC ENCEPHALOPATHY [None]
  - SHOCK HAEMORRHAGIC [None]
  - CONVULSION [None]
  - COGNITIVE DISORDER [None]
  - OVERDOSE [None]
